FAERS Safety Report 15714120 (Version 1)
Quarter: 2018Q4

REPORT INFORMATION
  Report Type: Spontaneous
  Country: US (occurrence: US)
  Receive Date: 20181129
  Receipt Date: 20181129
  Transmission Date: 20190205
  Serious: No
  Sender: FDA-Public Use
  Company Number: None

PATIENT
  Age: 52 Year
  Sex: Female

DRUGS (1)
  1. STELARA [Suspect]
     Active Substance: USTEKINUMAB
     Indication: PALMOPLANTAR PUSTULOSIS
     Route: 058
     Dates: start: 201810

REACTIONS (2)
  - Syphilis [None]
  - Chlamydial infection [None]
